FAERS Safety Report 21740567 (Version 1)
Quarter: 2022Q4

REPORT INFORMATION
  Report Type: Spontaneous
  Country: NL (occurrence: NL)
  Receive Date: 20221216
  Receipt Date: 20221216
  Transmission Date: 20230113
  Serious: Yes (Hospitalization)
  Sender: FDA-Public Use
  Company Number: None

PATIENT
  Age: 79 Year
  Sex: Male
  Weight: 91 kg

DRUGS (5)
  1. BISOPROLOL [Suspect]
     Active Substance: BISOPROLOL
     Indication: Supraventricular extrasystoles
     Dosage: 1 C PER DAY  1.25MG / BRAND NAME NOT SPECIFIED, FORM STRENGTH 12.5 MG, DURATION  21 YEARS
     Dates: start: 20020101, end: 20221113
  2. TELMISARTAN [Concomitant]
     Active Substance: TELMISARTAN
     Indication: Product used for unknown indication
     Dosage: TABLET, 80 MG (MILLIGRAM),FORM STRENGTH 500 MG
  3. ASPIRIN [Concomitant]
     Active Substance: ASPIRIN
     Indication: Product used for unknown indication
     Dosage: TABLET, 80 MG (MILLIGRAM), FORM STRENGTH  80 MG
  4. ATORVASTATIN [Concomitant]
     Active Substance: ATORVASTATIN
     Indication: Product used for unknown indication
     Dosage: TABLET, 40 MG (MILLIGRAM), FORM STRENGTH 40 MG
  5. PANTOPRAZOLE SODIUM [Concomitant]
     Active Substance: PANTOPRAZOLE SODIUM
     Indication: Product used for unknown indication
     Dosage: 40 MG (MILLIGRAM) BRAND NAME NOT SPECIFIED,  FORM STRENGTH 40 MG

REACTIONS (3)
  - Bradycardia [Recovered/Resolved]
  - Dyspnoea [Recovered/Resolved]
  - Presyncope [Recovered/Resolved]

NARRATIVE: CASE EVENT DATE: 20221105
